FAERS Safety Report 23379273 (Version 1)
Quarter: 2024Q1

REPORT INFORMATION
  Report Type: Spontaneous
  Country: US (occurrence: None)
  Receive Date: 20240107
  Receipt Date: 20240107
  Transmission Date: 20240410
  Serious: Yes (Hospitalization, Other)
  Sender: FDA-Public Use
  Company Number: None

PATIENT
  Age: 20 Year
  Sex: Female
  Weight: 56.25 kg

DRUGS (3)
  1. METHYLPREDNISOLONE [Suspect]
     Active Substance: METHYLPREDNISOLONE
     Indication: Post procedural swelling
     Dosage: OTHER QUANTITY : 21 TABLET(S);?OTHER FREQUENCY : TAPERED DOSE;?
     Route: 048
     Dates: start: 20231227, end: 20231231
  2. METHYLPREDNISOLONE [Suspect]
     Active Substance: METHYLPREDNISOLONE
     Indication: Wisdom teeth removal
  3. ZYPREXA [Concomitant]
     Active Substance: OLANZAPINE

REACTIONS (5)
  - Psychotic disorder [None]
  - Product communication issue [None]
  - Product use complaint [None]
  - Therapy cessation [None]
  - Drug interaction [None]

NARRATIVE: CASE EVENT DATE: 20231227
